FAERS Safety Report 9583343 (Version 1)
Quarter: 2013Q4

REPORT INFORMATION
  Report Type: Spontaneous
  Country: US (occurrence: US)
  Receive Date: 20131002
  Receipt Date: 20131002
  Transmission Date: 20140711
  Serious: No
  Sender: FDA-Public Use
  Company Number: US-AMGEN-USASP2013046237

PATIENT
  Age: 62 Year
  Sex: Male
  Weight: 108.84 kg

DRUGS (5)
  1. ENBREL [Suspect]
     Indication: PRODUCT USED FOR UNKNOWN INDICATION
     Dosage: 50 MG, QWK
     Route: 065
     Dates: start: 201303
  2. AMLODIPINE [Concomitant]
     Dosage: 2.5 MG, UNK
  3. LIPITOR [Concomitant]
     Dosage: 10 MG, UNK
  4. NEXIUM                             /01479302/ [Concomitant]
     Dosage: 40 MG, UNK
  5. LEXAPRO [Concomitant]
     Dosage: 5 MG, UNK

REACTIONS (5)
  - Respiratory tract congestion [Recovered/Resolved]
  - Nasal congestion [Recovered/Resolved]
  - Injection site bruising [Unknown]
  - Injection site pain [Unknown]
  - Injection site haemorrhage [Unknown]
